FAERS Safety Report 7903428-8 (Version None)
Quarter: 2011Q4

REPORT INFORMATION
  Report Type: 
  Country: None (occurrence: None)
  Receive Date: 20111109
  Receipt Date: 20111101
  Transmission Date: 20120403
  Serious: Yes (Hospitalization)
  Sender: FDA-Public Use
  Company Number: NL-MILLENNIUM PHARMACEUTICALS, INC.-2011-05269

PATIENT

DRUGS (3)
  1. REVLIMID [Suspect]
     Indication: MULTIPLE MYELOMA
     Dosage: 10 MG, UNK
     Route: 048
     Dates: start: 20111019, end: 20111022
  2. VELCADE [Suspect]
     Indication: MULTIPLE MYELOMA
     Dosage: 2 UNK, UNK
     Route: 042
     Dates: start: 20111018, end: 20111018
  3. DEXAMETHASONE [Suspect]
     Indication: MULTIPLE MYELOMA
     Dosage: UNK
     Dates: start: 20111019, end: 20111023

REACTIONS (1)
  - BONE MARROW DISORDER [None]
